FAERS Safety Report 4932112-8 (Version None)
Quarter: 2006Q1

REPORT INFORMATION
  Report Type: 
  Country: None (occurrence: None)
  Receive Date: 20060303
  Receipt Date: 20060220
  Transmission Date: 20060701
  Serious: Yes (Life-Threatening)
  Sender: FDA-Public Use
  Company Number: GB-ROCHE-437589

PATIENT
  Age: 69 Year
  Sex: Female
  Weight: 119 kg

DRUGS (1)
  1. XENICAL [Suspect]
     Indication: OBESITY
     Route: 048
     Dates: start: 20060128, end: 20060219

REACTIONS (2)
  - MALAISE [None]
  - PALPITATIONS [None]
